FAERS Safety Report 6424412-X (Version None)
Quarter: 2009Q4

REPORT INFORMATION
  Report Type: 
  Country: None (occurrence: None)
  Receive Date: 20091103
  Receipt Date: 20091022
  Transmission Date: 20100525
  Serious: Yes (Hospitalization)
  Sender: FDA-Public Use
  Company Number: US-JNJFOC-20091007685

PATIENT
  Age: 18 Year
  Sex: Male

DRUGS (4)
  1. REMICADE [Suspect]
     Indication: COLITIS ULCERATIVE
     Dosage: 3 DOSES
     Route: 042
  2. STEROIDS NOS [Concomitant]
     Indication: COLITIS ULCERATIVE
     Dosage: ^HIGH DOSE^
  3. TPN [Concomitant]
     Indication: COLITIS ULCERATIVE
  4. ANTIBIOTICS [Concomitant]
     Route: 042

REACTIONS (2)
  - COLECTOMY [None]
  - HYPERTHERMIA MALIGNANT [None]
